FAERS Safety Report 16497177 (Version 3)
Quarter: 2019Q3

REPORT INFORMATION
  Report Type: Spontaneous
  Country: US (occurrence: US)
  Receive Date: 20190628
  Receipt Date: 20190708
  Transmission Date: 20191004
  Serious: Yes (Other)
  Sender: FDA-Public Use
  Company Number: US-SUNOVION-2019SUN002581

PATIENT
  Sex: Female

DRUGS (4)
  1. LATUDA [Suspect]
     Active Substance: LURASIDONE HYDROCHLORIDE
     Indication: BIPOLAR DISORDER
     Dosage: UNK
     Route: 048
  2. LATUDA [Suspect]
     Active Substance: LURASIDONE HYDROCHLORIDE
     Dosage: 40 MG
     Route: 048
  3. LATUDA [Suspect]
     Active Substance: LURASIDONE HYDROCHLORIDE
     Dosage: 20 MG
     Route: 048
  4. TEGRETOL XR [Suspect]
     Active Substance: CARBAMAZEPINE
     Dosage: UNK
     Route: 065

REACTIONS (11)
  - Incorrect dose administered [Unknown]
  - Abdominal discomfort [Unknown]
  - Diverticulitis [Unknown]
  - Off label use [Unknown]
  - Crying [Unknown]
  - Malaise [Unknown]
  - Nervousness [Unknown]
  - Depressed mood [Unknown]
  - Gastrointestinal disorder [Unknown]
  - Product administration error [Unknown]
  - Colitis [Unknown]
